FAERS Safety Report 4302098-8 (Version None)
Quarter: 2004Q1

REPORT INFORMATION
  Report Type: 
  Country: None (occurrence: None)
  Receive Date: 20040220
  Receipt Date: 20040206
  Transmission Date: 20041129
  Serious: Yes (Hospitalization)
  Sender: FDA-Public Use
  Company Number: 235080

PATIENT
  Age: 75 Year
  Sex: Male
  Weight: 93.9 kg

DRUGS (6)
  1. NOVORAPID PENFILL (INSULIN ASPART) SOLUTION FOR INJECTION, 100U/ML [Suspect]
     Indication: INSULIN-REQUIRING TYPE II DIABETES MELLITUS
     Dosage: 12 IU, QD, SUBCUTANEOUS
     Route: 058
     Dates: start: 20031014, end: 20031015
  2. NOVOFORM (REPAGLINIDE) [Concomitant]
  3. METFORMIN [Concomitant]
  4. COZAAR [Concomitant]
  5. ZOCOR [Concomitant]
  6. DOLOL (TRAMADOL) [Concomitant]

REACTIONS (5)
  - ACUTE MYOCARDIAL INFARCTION [None]
  - AORTIC STENOSIS [None]
  - ATRIAL FIBRILLATION [None]
  - CORONARY ARTERY STENOSIS [None]
  - MITRAL VALVE INCOMPETENCE [None]
